FAERS Safety Report 5890148-7 (Version None)
Quarter: 2008Q3

REPORT INFORMATION
  Report Type: 
  Country: None (occurrence: None)
  Receive Date: 20080919
  Receipt Date: 20080909
  Transmission Date: 20090109
  Serious: Yes (Other)
  Sender: FDA-Public Use
  Company Number: PT-PFIZER INC-2008071596

PATIENT
  Sex: Male
  Weight: 66 kg

DRUGS (5)
  1. CHANTIX [Suspect]
     Indication: SMOKING CESSATION THERAPY
     Route: 048
     Dates: start: 20080807, end: 20080820
  2. CHANTIX [Suspect]
     Dosage: TEXT:0,5MG BID  TDD:1MG
     Route: 048
  3. CHANTIX [Suspect]
     Dosage: TEXT:1MG BID  TDD:2MG
     Route: 048
  4. INSULIN [Concomitant]
     Indication: TYPE 1 DIABETES MELLITUS
     Route: 058
  5. HMG COA REDUCTASE INHIBITORS [Concomitant]
     Route: 048

REACTIONS (1)
  - BLOOD GLUCOSE INCREASED [None]
